FAERS Safety Report 13822210 (Version 1)
Quarter: 2017Q3

REPORT INFORMATION
  Report Type: Spontaneous
  Country: US (occurrence: US)
  Receive Date: 20170801
  Receipt Date: 20170801
  Transmission Date: 20171127
  Serious: Yes (Other)
  Sender: FDA-Public Use
  Company Number: US-APOPHARMA USA, INC.-2017AP016077

PATIENT
  Age: 5 Month
  Sex: Female

DRUGS (9)
  1. CAMPATH [Concomitant]
     Active Substance: ALEMTUZUMAB
     Indication: CORD BLOOD TRANSPLANT THERAPY
     Dosage: 1 MG/KG, OTHER
     Route: 042
  2. MYCOPHENOLATE MOFETIL. [Concomitant]
     Active Substance: MYCOPHENOLATE MOFETIL
     Indication: PROPHYLAXIS AGAINST GRAFT VERSUS HOST DISEASE
     Dosage: 45 MG/KG, UNK
     Route: 042
  3. ALKERAN [Suspect]
     Active Substance: MELPHALAN
     Indication: CORD BLOOD TRANSPLANT THERAPY
     Dosage: 70 MG/M2, TID
     Route: 042
  4. TACROLIMUS. [Concomitant]
     Active Substance: TACROLIMUS
     Indication: PROPHYLAXIS AGAINST GRAFT VERSUS HOST DISEASE
     Dosage: 8 UNK, UNK
     Route: 042
  5. IMMUNOGLOBULIN                     /00025201/ [Concomitant]
     Active Substance: HUMAN IMMUNOGLOBULIN G
     Indication: SUPPORTIVE CARE
     Dosage: 500 MG/KG, Q.WK.
     Route: 042
  6. ACYCLOVIR                          /00587301/ [Concomitant]
     Active Substance: ACYCLOVIR
     Indication: ANTIVIRAL PROPHYLAXIS
     Route: 065
  7. FLUDARABINE [Concomitant]
     Active Substance: FLUDARABINE PHOSPHATE
     Indication: CORD BLOOD TRANSPLANT THERAPY
     Dosage: 30 MG/M2, QD
     Route: 042
  8. HEPARIN [Concomitant]
     Active Substance: HEPARIN SODIUM
     Indication: VENOOCCLUSIVE DISEASE
     Dosage: 100 IU/KG, QD
     Route: 042
  9. VORICONAZOL [Concomitant]
     Active Substance: VORICONAZOLE
     Indication: ANTIFUNGAL PROPHYLAXIS
     Route: 065

REACTIONS (5)
  - Acinetobacter bacteraemia [Unknown]
  - Enterobacter bacteraemia [Unknown]
  - Acute graft versus host disease in skin [Unknown]
  - Klebsiella bacteraemia [Unknown]
  - Autoimmune thyroiditis [Unknown]
